FAERS Safety Report 19953072 (Version 2)
Quarter: 2021Q4

REPORT INFORMATION
  Report Type: Spontaneous
  Country: US (occurrence: US)
  Receive Date: 20211014
  Receipt Date: 20211206
  Transmission Date: 20220303
  Serious: No
  Sender: FDA-Public Use
  Company Number: US-MYLANLABS-2021M1068613

PATIENT
  Sex: Female
  Weight: 42 kg

DRUGS (22)
  1. FENTANYL TRANSDERMAL SYSTEM [Suspect]
     Active Substance: FENTANYL
     Indication: Back pain
     Dosage: 75 MICROGRAM, Q3D,  EVERY 3 DAYS
     Route: 062
     Dates: start: 202009
  2. FENTANYL [Suspect]
     Active Substance: FENTANYL
     Indication: Back pain
     Dosage: 100 MICROGRAM
  3. ASPIRIN                            /00002701/ [Concomitant]
     Dosage: 1 TABLET EVERY DATE
     Route: 048
  4. TYLENOL                            /00020001/ [Concomitant]
     Dosage: UNK
  5. FLEET ENEMA [Concomitant]
     Active Substance: SODIUM PHOSPHATE, DIBASIC\SODIUM PHOSPHATE, MONOBASIC
     Dosage: UNK, QD 19-GRAM-7 GRAM/118 ML
     Route: 054
  6. LORAZEPAM [Concomitant]
     Active Substance: LORAZEPAM
     Dosage: 1 DOSAGE FORM, Q4H
  7. PFIZER-BIONTECH COVID-19 VACCINE [Concomitant]
     Active Substance: TOZINAMERAN
     Indication: COVID-19 immunisation
     Dosage: UNK
     Dates: start: 20211028
  8. PFIZER-BIONTECH COVID-19 VACCINE [Concomitant]
     Active Substance: TOZINAMERAN
     Dosage: UNK
     Dates: start: 20211019
  9. PRAMIPEXOLE [Concomitant]
     Active Substance: PRAMIPEXOLE
     Indication: Restless legs syndrome
     Dosage: 1 DOSAGE FORM, TID
     Route: 048
  10. MORPHINE [Concomitant]
     Active Substance: MORPHINE
     Dosage: UNK
  11. ALLOPURINOL [Concomitant]
     Active Substance: ALLOPURINOL
     Dosage: 1 TABLET EVERY DAY FOR 90 DAYS
     Route: 048
  12. BUSPIRONE [Concomitant]
     Active Substance: BUSPIRONE HYDROCHLORIDE
     Dosage: TAKE 1 TABLET 3 TIMES A DAY
     Route: 048
  13. CALCITONIN [Concomitant]
     Active Substance: CALCITONIN
     Dosage: USE AS DIRECTED
  14. CHOLECALCIFEROL [Concomitant]
     Active Substance: CHOLECALCIFEROL
     Dosage: 600MG DAILY
     Route: 048
  15. DILTIAZEM [Concomitant]
     Active Substance: DILTIAZEM
     Dosage: 1 CAPSULE TWICE A DAY
     Route: 048
  16. METOLAZONE [Concomitant]
     Active Substance: METOLAZONE
     Dosage: 1 TABLET AS NEEDED
     Route: 048
  17. METOPROLOL SUCCINATE [Concomitant]
     Active Substance: METOPROLOL SUCCINATE
     Dosage: 1 TABLET EVERY DAY FOR 30 DAYS
     Route: 048
  18. MIRALAX [Concomitant]
     Active Substance: POLYETHYLENE GLYCOL 3350
     Dosage: TAKE 1 DOSE ONCE DAY
     Route: 048
  19. NITROFURANTOIN MACROCRYSTALS [Concomitant]
     Active Substance: NITROFURANTOIN
     Dosage: TAKE 1 CAPSULE EVERY DAY FOR 28 DAYS
     Route: 048
  20. ONDANSETRON [Concomitant]
     Active Substance: ONDANSETRON
     Dosage: UNK
  21. SENNA                              /00142201/ [Concomitant]
     Dosage: TAKE 2 TABLETS EVEY DAY
     Route: 048
  22. TAMSULOSIN [Concomitant]
     Active Substance: TAMSULOSIN
     Dosage: TAKE 1 CAPSULE EVERY DAY FOR 30 DAYS
     Route: 048

REACTIONS (2)
  - Application site pruritus [Not Recovered/Not Resolved]
  - Product substitution issue [Unknown]
